FAERS Safety Report 9493650 (Version 4)
Quarter: 2014Q1

REPORT INFORMATION
  Report Type: Report from Study
  Country: JP (occurrence: JP)
  Receive Date: 20130902
  Receipt Date: 20140205
  Transmission Date: 20141002
  Serious: Yes (Hospitalization)
  Sender: FDA-Public Use
  Company Number: JP-JNJFOC-20130813250

PATIENT
  Age: 82 Year
  Sex: Female

DRUGS (17)
  1. ITRIZOLE [Suspect]
     Indication: ANTIFUNGAL PROPHYLAXIS
     Route: 048
     Dates: start: 20130426, end: 20130428
  2. REVLIMID [Suspect]
     Indication: PLASMA CELL MYELOMA
     Route: 048
     Dates: end: 20130430
  3. IRBETAN [Concomitant]
     Indication: HYPERTENSION
     Route: 048
  4. PURSENNID [Concomitant]
     Indication: CONSTIPATION
     Route: 048
  5. AMLODIN OD [Concomitant]
     Indication: HYPERTENSION
     Route: 048
  6. MAGLAX [Concomitant]
     Indication: CONSTIPATION
     Route: 048
  7. ALOSITOL [Concomitant]
     Indication: HYPERTENSION
     Route: 048
  8. PARIET [Concomitant]
     Indication: PROPHYLAXIS
     Route: 048
  9. NOVAMIN [Concomitant]
     Indication: PROPHYLAXIS
     Route: 048
  10. BAYASPIRIN [Concomitant]
     Indication: PROPHYLAXIS
     Route: 048
  11. LENADEX [Concomitant]
     Indication: PLASMA CELL MYELOMA
     Route: 048
  12. OXYCONTIN [Concomitant]
     Indication: PLASMA CELL MYELOMA
     Route: 048
  13. ASPARTATE POTASSIUM [Concomitant]
     Indication: HYPOKALAEMIA
     Route: 048
  14. VORICONAZOLE [Concomitant]
     Indication: PROPHYLAXIS
     Route: 048
  15. CRAVIT [Concomitant]
     Indication: PROPHYLAXIS
     Route: 048
  16. LENALIDOMIDE [Concomitant]
     Indication: PLASMA CELL MYELOMA
     Route: 048
     Dates: start: 20130411
  17. DEXAMETHASONE [Concomitant]
     Indication: PLASMA CELL MYELOMA
     Route: 065
     Dates: start: 20130411

REACTIONS (1)
  - Tremor [Recovered/Resolved]
